FAERS Safety Report 8150194 (Version 2)
Quarter: 2013Q2

REPORT INFORMATION
  Report Type: Spontaneous
  Country: US (occurrence: US)
  Receive Date: 20110922
  Receipt Date: 20130408
  Transmission Date: 20140414
  Serious: Yes (Other)
  Sender: FDA-Public Use
  Company Number: US-ASTRAZENECA-2011SE12482

PATIENT
  Sex: Female

DRUGS (4)
  1. SEROQUEL [Suspect]
     Route: 048
     Dates: start: 20010329, end: 20010330
  2. SEROQUEL [Suspect]
     Route: 048
     Dates: start: 20010330
  3. ZYPREXA ZYDIS [Concomitant]
     Dates: start: 20010329, end: 20010330
  4. ZYPREXA ZYDIS [Concomitant]
     Route: 048
     Dates: start: 20010330

REACTIONS (3)
  - Pancreatitis [Unknown]
  - Diabetic coma [Unknown]
  - Type 2 diabetes mellitus [Unknown]
